FAERS Safety Report 20533980 (Version 1)
Quarter: 2022Q1

REPORT INFORMATION
  Report Type: Report from Study
  Country: AR (occurrence: AR)
  Receive Date: 20220301
  Receipt Date: 20220301
  Transmission Date: 20220423
  Serious: Yes (Death, Hospitalization)
  Sender: FDA-Public Use
  Company Number: AR-JNJFOC-20220248869

PATIENT
  Age: 65 Year
  Sex: Male
  Weight: 110 kg

DRUGS (4)
  1. REMICADE [Suspect]
     Active Substance: INFLIXIMAB
     Indication: Rheumatoid arthritis
     Route: 042
     Dates: start: 20180622
  2. METHOTREXATE [Concomitant]
     Active Substance: METHOTREXATE
  3. ENALAPRIL [Concomitant]
     Active Substance: ENALAPRIL
  4. ACENOCOUMAROL [Concomitant]
     Active Substance: ACENOCOUMAROL

REACTIONS (2)
  - COVID-19 pneumonia [Fatal]
  - Hypertension [Fatal]
